FAERS Safety Report 20224275 (Version 2)
Quarter: 2021Q4

REPORT INFORMATION
  Report Type: Other
  Country: US (occurrence: None)
  Receive Date: 20211223
  Receipt Date: 20211231
  Transmission Date: 20220303
  Serious: Yes (Life-Threatening, Other)
  Sender: FDA-Public Use
  Company Number: US-ROCHE-2977843

PATIENT
  Sex: Female
  Weight: 83.990 kg

DRUGS (2)
  1. OCREVUS [Suspect]
     Active Substance: OCRELIZUMAB
     Indication: Relapsing multiple sclerosis
     Route: 042
     Dates: start: 20210601
  2. GILENYA [Concomitant]
     Active Substance: FINGOLIMOD HYDROCHLORIDE

REACTIONS (6)
  - B-lymphocyte abnormalities [Unknown]
  - Multiple sclerosis relapse [Recovered/Resolved]
  - Herpes zoster [Unknown]
  - Oral herpes [Unknown]
  - Eye infection [Unknown]
  - Coagulopathy [Unknown]
